FAERS Safety Report 19809706 (Version 2)
Quarter: 2021Q3

REPORT INFORMATION
  Report Type: Spontaneous
  Country: CN (occurrence: CN)
  Receive Date: 20210909
  Receipt Date: 20210915
  Transmission Date: 20211014
  Serious: Yes (Hospitalization, Other)
  Sender: FDA-Public Use
  Company Number: CN-EISAI MEDICAL RESEARCH-EC-2021-099150

PATIENT
  Age: 56 Year
  Sex: Female
  Weight: 45 kg

DRUGS (4)
  1. LENVIMA [Suspect]
     Active Substance: LENVATINIB
     Indication: GALLBLADDER CANCER
     Route: 048
     Dates: start: 20210804, end: 20210824
  2. CAMRELIZUMAB [Suspect]
     Active Substance: CAMRELIZUMAB
     Indication: GALLBLADDER CANCER
     Route: 041
     Dates: start: 20210804, end: 20210804
  3. GEMCITABINE HYDROCHLORIDE. [Suspect]
     Active Substance: GEMCITABINE HYDROCHLORIDE
     Indication: GALLBLADDER CANCER
     Route: 041
     Dates: start: 20210804, end: 20210804
  4. GLUTATHIONE [Concomitant]
     Active Substance: GLUTATHIONE
     Indication: HEPATOBILIARY DISORDER PROPHYLAXIS
     Dosage: 1.8 G + SODIUM CHLORIDE AT 100 ML (FREQUENCY UNKNOWN)
     Route: 041
     Dates: start: 20210802, end: 20210805

REACTIONS (3)
  - White blood cell count decreased [Recovering/Resolving]
  - Neutrophil count decreased [Recovering/Resolving]
  - Transaminases increased [Recovering/Resolving]

NARRATIVE: CASE EVENT DATE: 20210810
